FAERS Safety Report 24647489 (Version 2)
Quarter: 2024Q4

REPORT INFORMATION
  Report Type: Spontaneous
  Country: US (occurrence: US)
  Receive Date: 20241121
  Receipt Date: 20241129
  Transmission Date: 20250115
  Serious: Yes (Other)
  Sender: ALEXION PHARMACEUTICALS
  Company Number: US-AstraZeneca-CH-00714325A

PATIENT
  Age: 56 Year
  Weight: 78.005 kg

DRUGS (1)
  1. ESOMEPRAZOLE MAGNESIUM [Suspect]
     Active Substance: ESOMEPRAZOLE MAGNESIUM
     Dosage: UNK

REACTIONS (5)
  - Hepatic cirrhosis [Unknown]
  - Gallbladder polyp [Unknown]
  - Gastrooesophageal reflux disease [Unknown]
  - Scar [Unknown]
  - Procedural pain [Unknown]
